FAERS Safety Report 7053348-9 (Version None)
Quarter: 2010Q4

REPORT INFORMATION
  Report Type: 
  Country: None (occurrence: None)
  Receive Date: 20101013
  Receipt Date: 20101007
  Transmission Date: 20110411
  Serious: Yes (Death)
  Sender: FDA-Public Use
  Company Number: 2010SP052137

PATIENT
  Age: 63 Year
  Sex: Male
  Weight: 59 kg

DRUGS (9)
  1. REMERON [Suspect]
     Indication: DEPRESSION
     Dosage: 15 MG;QD;PO ; 30 MG;QD;PO
     Route: 048
     Dates: start: 20091022, end: 20091111
  2. REMERON [Suspect]
     Indication: DEPRESSION
     Dosage: 15 MG;QD;PO ; 30 MG;QD;PO
     Route: 048
     Dates: start: 20091112, end: 20100627
  3. ZYPREXA [Suspect]
     Indication: INSOMNIA
     Dosage: 2.5 MG;PO
     Route: 048
     Dates: start: 20100205, end: 20100301
  4. LUVOX [Concomitant]
  5. MYSLEE [Concomitant]
  6. SILECE [Concomitant]
  7. DEPAS [Concomitant]
  8. RESLIN [Concomitant]
  9. BENZALIN [Concomitant]

REACTIONS (8)
  - ALANINE AMINOTRANSFERASE INCREASED [None]
  - ASPARTATE AMINOTRANSFERASE INCREASED [None]
  - COMPLETED SUICIDE [None]
  - DRUG EFFECT DECREASED [None]
  - HEPATIC FUNCTION ABNORMAL [None]
  - MALAISE [None]
  - REFUSAL OF TREATMENT BY PATIENT [None]
  - SOMNOLENCE [None]
